FAERS Safety Report 8303860 (Version 2)
Quarter: 2014Q1

REPORT INFORMATION
  Report Type: Spontaneous
  Country: US (occurrence: US)
  Receive Date: 20111221
  Receipt Date: 20140123
  Transmission Date: 20141002
  Serious: Yes (Other)
  Sender: FDA-Public Use
  Company Number: US-BAYER-2011-119608

PATIENT
  Age: 29 Year
  Sex: Female
  Weight: 86.17 kg

DRUGS (3)
  1. YASMIN [Suspect]
     Dosage: UNK
     Dates: start: 2004, end: 200806
  2. LEXAPRO [Concomitant]
     Dosage: UNK
     Route: 048
     Dates: start: 20070806, end: 20070815
  3. PERCOCET [Concomitant]

REACTIONS (7)
  - Gallbladder disorder [None]
  - Cholecystitis chronic [None]
  - Injury [None]
  - Pain [None]
  - Anxiety [None]
  - Anhedonia [None]
  - Post cholecystectomy syndrome [None]
